FAERS Safety Report 7320817-3 (Version None)
Quarter: 2011Q1

REPORT INFORMATION
  Report Type: 
  Country: None (occurrence: None)
  Receive Date: 20110228
  Receipt Date: 20110223
  Transmission Date: 20110831
  Serious: Yes (Death, Other)
  Sender: FDA-Public Use
  Company Number: BR-ROCHE-760104

PATIENT
  Sex: Female

DRUGS (4)
  1. NAUSEDRON [Concomitant]
  2. PLANTABEN [Concomitant]
  3. XELODA [Suspect]
     Indication: HEPATIC NEOPLASM MALIGNANT
     Route: 048
     Dates: start: 20090101, end: 20090101
  4. QUESTRAN [Concomitant]

REACTIONS (3)
  - DEATH [None]
  - ANAEMIA [None]
  - GASTROINTESTINAL HAEMORRHAGE [None]
